FAERS Safety Report 24970754 (Version 1)
Quarter: 2025Q1

REPORT INFORMATION
  Report Type: Spontaneous
  Country: US (occurrence: US)
  Receive Date: 20250214
  Receipt Date: 20250214
  Transmission Date: 20250408
  Serious: No
  Sender: THEA PHARMA INC.
  Company Number: US-THEA-2024000846

PATIENT
  Age: 75 Year
  Sex: Female

DRUGS (1)
  1. COSOPT PF [Suspect]
     Active Substance: DORZOLAMIDE HYDROCHLORIDE\TIMOLOL MALEATE
     Indication: Glaucoma
     Dosage: ONE IN THE MORNING AND ONE IN THE ?EVENING, ONE EYE DROP IN EACH EYE
     Route: 047

REACTIONS (5)
  - Product package associated injury [Unknown]
  - Product packaging difficult to open [Unknown]
  - Product complaint [Unknown]
  - Incorrect dose administered [Unknown]
  - Wrong technique in product usage process [Unknown]
